FAERS Safety Report 6954849-1 (Version None)
Quarter: 2010Q3

REPORT INFORMATION
  Report Type: 
  Country: None (occurrence: None)
  Receive Date: 20100830
  Receipt Date: 20100816
  Transmission Date: 20110219
  Serious: No
  Sender: FDA-Public Use
  Company Number: US-B.I. PHARMACEUTICALS,INC./RIDGEFIELD-2010-BP-01162BP

PATIENT
  Age: 52 Year
  Sex: Male

DRUGS (1)
  1. FLOMAX [Suspect]
     Indication: MUSCLE SPASTICITY

REACTIONS (2)
  - ADVERSE DRUG REACTION [None]
  - INSOMNIA [None]
